FAERS Safety Report 5693789-5 (Version None)
Quarter: 2008Q2

REPORT INFORMATION
  Report Type: 
  Country: None (occurrence: None)
  Receive Date: 20080403
  Receipt Date: 20080325
  Transmission Date: 20081010
  Serious: Yes (Life-Threatening, Hospitalization)
  Sender: FDA-Public Use
  Company Number: DK-TYCO HEALTHCARE/MALLINCKRODT-T200800594

PATIENT

DRUGS (2)
  1. OPTIRAY 300 [Suspect]
     Indication: DRUG USE FOR UNKNOWN INDICATION
     Dosage: 50 ML, SINGLE
     Route: 042
     Dates: start: 20080306, end: 20080306
  2. SIMVASTATIN [Concomitant]

REACTIONS (1)
  - ANAPHYLACTIC REACTION [None]
